FAERS Safety Report 9068762 (Version 1)
Quarter: 2013Q1

REPORT INFORMATION
  Report Type: Spontaneous
  Country: US (occurrence: None)
  Receive Date: 20130212
  Receipt Date: 20130212
  Transmission Date: 20140127
  Serious: Yes (Death)
  Sender: FDA-Public Use
  Company Number: None

PATIENT
  Age: 75 Year
  Sex: Male
  Weight: 71.6 kg

DRUGS (1)
  1. XL-184 [Suspect]
     Dates: start: 20121010, end: 20121015

REACTIONS (2)
  - Disease progression [None]
  - Death [None]
